FAERS Safety Report 9329761 (Version 1)
Quarter: 2013Q2

REPORT INFORMATION
  Report Type: Spontaneous
  Country: US (occurrence: US)
  Receive Date: 20130604
  Receipt Date: 20130604
  Transmission Date: 20140414
  Serious: No
  Sender: FDA-Public Use
  Company Number: US-SANOFI-AVENTIS-2013SA035679

PATIENT
  Sex: Female

DRUGS (2)
  1. LANTUS [Suspect]
  2. NOVOLOG [Concomitant]

REACTIONS (4)
  - Muscle spasms [Unknown]
  - Musculoskeletal pain [Unknown]
  - Weight increased [Unknown]
  - Blood glucose fluctuation [Unknown]
